FAERS Safety Report 8618168-X (Version None)
Quarter: 2012Q3

REPORT INFORMATION
  Report Type: 
  Country: None (occurrence: None)
  Receive Date: 20120824
  Receipt Date: 20120426
  Transmission Date: 20120928
  Serious: Yes (Hospitalization)
  Sender: FDA-Public Use
  Company Number: US-ASTRAZENECA-2012SE27318

PATIENT
  Sex: Female

DRUGS (3)
  1. NEBULIZER [Concomitant]
     Dosage: DAILY
  2. SYMBICORT [Suspect]
     Indication: ASTHMA
     Dosage: BID
     Route: 055
     Dates: start: 20111001
  3. SYMBICORT [Suspect]
     Indication: CHRONIC OBSTRUCTIVE PULMONARY DISEASE
     Dosage: BID
     Route: 055
     Dates: start: 20111001

REACTIONS (1)
  - PNEUMONIA [None]
